FAERS Safety Report 19588066 (Version 2)
Quarter: 2022Q2

REPORT INFORMATION
  Report Type: Spontaneous
  Country: GB (occurrence: GB)
  Receive Date: 20210721
  Receipt Date: 20220406
  Transmission Date: 20220721
  Serious: Yes (Other)
  Sender: FDA-Public Use
  Company Number: None

PATIENT
  Age: 31 Year
  Sex: Female
  Weight: 101.6 kg

DRUGS (1)
  1. LAMICTAL [Suspect]
     Active Substance: LAMOTRIGINE
     Indication: Bipolar disorder
     Dosage: 300 MG
     Route: 048
     Dates: start: 20131001

REACTIONS (6)
  - Adverse drug reaction [Not Recovered/Not Resolved]
  - Photosensitivity reaction [Not Recovered/Not Resolved]
  - Pustule [Unknown]
  - Rash macular [Unknown]
  - Flushing [Unknown]
  - Sunburn [Unknown]

NARRATIVE: CASE EVENT DATE: 20150601
